FAERS Safety Report 5262532-6 (Version None)
Quarter: 2007Q1

REPORT INFORMATION
  Report Type: 
  Country: None (occurrence: None)
  Receive Date: 20070312
  Receipt Date: 20070228
  Transmission Date: 20070707
  Serious: Yes (Hospitalization, Other)
  Sender: FDA-Public Use
  Company Number: CA-ABBOTT-06P-028-0354210-00

PATIENT
  Age: 44 Year
  Sex: Female

DRUGS (7)
  1. LIPIDIL [Suspect]
     Indication: DRUG USE FOR UNKNOWN INDICATION
  2. OLANZAPINE [Suspect]
     Indication: DRUG USE FOR UNKNOWN INDICATION
     Dates: start: 20050101, end: 20060101
  3. LANSOPRAZOLE [Concomitant]
     Indication: DRUG USE FOR UNKNOWN INDICATION
  4. PAROXETINE HYDROCHLORIDE [Concomitant]
     Indication: DRUG USE FOR UNKNOWN INDICATION
  5. CELECOXIB [Concomitant]
     Indication: DRUG USE FOR UNKNOWN INDICATION
  6. ORLISTAT [Concomitant]
     Indication: DRUG USE FOR UNKNOWN INDICATION
  7. EZETROL [Concomitant]
     Indication: DRUG USE FOR UNKNOWN INDICATION

REACTIONS (9)
  - ASTHENIA [None]
  - CEREBRAL HAEMORRHAGE [None]
  - CEREBROVASCULAR ACCIDENT [None]
  - HEMIPARESIS [None]
  - HIGH DENSITY LIPOPROTEIN INCREASED [None]
  - HYPERTRIGLYCERIDAEMIA [None]
  - LOW DENSITY LIPOPROTEIN INCREASED [None]
  - PANCREATITIS HAEMORRHAGIC [None]
  - THROMBOSIS [None]
